FAERS Safety Report 4579750-2 (Version None)
Quarter: 2005Q1

REPORT INFORMATION
  Report Type: 
  Country: None (occurrence: None)
  Receive Date: 20050210
  Receipt Date: 20050210
  Transmission Date: 20050727
  Serious: Yes (Hospitalization)
  Sender: FDA-Public Use
  Company Number: None

PATIENT
  Age: 86 Year
  Sex: Male
  Weight: 89 kg

DRUGS (16)
  1. WARFARIN SODIUM [Suspect]
     Indication: ATRIAL FIBRILLATION
     Dosage: 2.5MG  DAILY ORAL
     Route: 048
  2. ASPIRIN [Suspect]
     Dosage: 325MG DAILY ORAL
     Route: 048
  3. AMIODARONE HCL [Concomitant]
  4. ALLOPURINOL [Concomitant]
  5. BACLOFEN [Concomitant]
  6. DOCUSATE [Concomitant]
  7. DOXAZOSIN [Concomitant]
  8. GEMFIBROZIL [Concomitant]
  9. LEVOTHYROXINE [Concomitant]
  10. SIMVASTATIN [Concomitant]
  11. NORTRIPTYLINE HCL [Concomitant]
  12. LISINOPRIL [Concomitant]
  13. TRAZODONE [Concomitant]
  14. CELECOXIB [Concomitant]
  15. DILTIAZEM [Concomitant]
  16. FUROSEMIDE [Concomitant]

REACTIONS (5)
  - HAEMATOCHEZIA [None]
  - HAEMATOCRIT DECREASED [None]
  - OCCULT BLOOD POSITIVE [None]
  - ORTHOSTATIC HYPOTENSION [None]
  - SUBARACHNOID HAEMORRHAGE [None]
